FAERS Safety Report 16193319 (Version 1)
Quarter: 2019Q2

REPORT INFORMATION
  Report Type: Spontaneous
  Country: US (occurrence: US)
  Receive Date: 20190413
  Receipt Date: 20190413
  Transmission Date: 20190711
  Serious: No
  Sender: FDA-Public Use
  Company Number: US-TEVA-2019-US-1027421

PATIENT
  Sex: Male

DRUGS (6)
  1. TAMULOSIN [Concomitant]
     Active Substance: TAMSULOSIN
     Route: 065
  2. DUTASTERIDE. [Concomitant]
     Active Substance: DUTASTERIDE
     Route: 065
  3. CLONAZEPAM. [Concomitant]
     Active Substance: CLONAZEPAM
     Route: 065
  4. CARBIDOPA AND LEVODOPA TABLET [Suspect]
     Active Substance: CARBIDOPA\LEVODOPA
     Indication: PARKINSON^S DISEASE
     Dosage: FORM STRENGTH: CARBIDOPA 25 MG AND LEVODOPA 100 MG
     Route: 065
     Dates: start: 2011
  5. FENTANYL PATCH APOTEX [Concomitant]
     Dosage: EVERY THREE DAYS
     Route: 065
  6. ESCITALOPRAM [Concomitant]
     Active Substance: ESCITALOPRAM OXALATE
     Route: 065

REACTIONS (2)
  - Fatigue [Unknown]
  - Dyspnoea exertional [Unknown]
